FAERS Safety Report 8816144 (Version 2)
Quarter: 2013Q2

REPORT INFORMATION
  Report Type: Spontaneous
  Country: US (occurrence: US)
  Receive Date: 20120929
  Receipt Date: 20130426
  Transmission Date: 20140414
  Serious: Yes (Disabling)
  Sender: FDA-Public Use
  Company Number: US-009507513-1209USA011698

PATIENT
  Age: 61 Year
  Sex: Female
  Weight: 95.24 kg

DRUGS (2)
  1. PEGINTRON [Suspect]
     Indication: HEPATITIS C
     Dosage: 150MCG/0.5ML, QW
     Dates: start: 20120921, end: 20130308
  2. REBETOL [Suspect]
     Indication: HEPATITIS C
     Dosage: 400 MG, BID
     Route: 048
     Dates: start: 201209, end: 201303

REACTIONS (2)
  - Fatigue [Not Recovered/Not Resolved]
  - Pain [Recovering/Resolving]
